FAERS Safety Report 20728349 (Version 1)
Quarter: 2022Q2

REPORT INFORMATION
  Report Type: Other
  Country: JP (occurrence: None)
  Receive Date: 20220420
  Receipt Date: 20220420
  Transmission Date: 20220721
  Serious: Yes (Other)
  Sender: FDA-Public Use
  Company Number: JP-Umedica-000254

PATIENT
  Age: 22 Year
  Sex: Male
  Weight: 67 kg

DRUGS (3)
  1. CARBAMAZEPINE [Suspect]
     Active Substance: CARBAMAZEPINE
     Indication: Paraesthesia
     Dosage: 200MG/DAY
  2. AGALSIDASE BETA [Suspect]
     Active Substance: AGALSIDASE BETA
     Indication: Fabry^s disease
     Dosage: 1MG/KG, EVERY OTHER WEEK
  3. CARBAMAZEPINE [Suspect]
     Active Substance: CARBAMAZEPINE
     Indication: Paraesthesia
     Dosage: 600MG/DAY

REACTIONS (3)
  - Glomerulonephritis membranous [Recovered/Resolved]
  - Paraesthesia [Unknown]
  - Disease recurrence [Unknown]
